FAERS Safety Report 26215245 (Version 1)
Quarter: 2025Q4

REPORT INFORMATION
  Report Type: Spontaneous
  Country: US (occurrence: US)
  Receive Date: 20251230
  Receipt Date: 20251230
  Transmission Date: 20260119
  Serious: Yes (Other)
  Sender: ABBVIE
  Company Number: US-ABBVIE-6609636

PATIENT
  Age: 43 Year
  Sex: Female

DRUGS (3)
  1. RISANKIZUMAB [Suspect]
     Active Substance: RISANKIZUMAB
     Indication: Colitis ulcerative
     Dosage: INDUCTION DOSE
     Route: 058
  2. RISANKIZUMAB [Suspect]
     Active Substance: RISANKIZUMAB
     Dosage: MAINTENANCE DOSE
     Route: 058
  3. PREDNISONE [Concomitant]
     Active Substance: PREDNISONE
     Indication: Colitis ulcerative
     Dosage: TAPERED PREDNISONE DOSE BY THE TIME OF COMPLETION OF RISANKIZUMAB INDUCTION
     Route: 065

REACTIONS (1)
  - Drug-induced liver injury [Unknown]
